FAERS Safety Report 8504748-9 (Version None)
Quarter: 2012Q3

REPORT INFORMATION
  Report Type: 
  Country: None (occurrence: None)
  Receive Date: 20120712
  Receipt Date: 20120628
  Transmission Date: 20120928
  Serious: Yes (Hospitalization)
  Sender: FDA-Public Use
  Company Number: GR-AMGEN-GRCSP2012036942

PATIENT
  Sex: Female

DRUGS (1)
  1. ENBREL [Suspect]
     Dosage: 50 MG, UNK
     Dates: end: 20120101

REACTIONS (6)
  - HAEMATOCRIT DECREASED [None]
  - HYPERSENSITIVITY [None]
  - URINARY SEDIMENT PRESENT [None]
  - ACNE [None]
  - PLATELET COUNT INCREASED [None]
  - PSORIASIS [None]
